FAERS Safety Report 13282183 (Version 1)
Quarter: 2017Q1

REPORT INFORMATION
  Report Type: Spontaneous
  Country: US (occurrence: US)
  Receive Date: 20170301
  Receipt Date: 20170301
  Transmission Date: 20170428
  Serious: No
  Sender: FDA-Public Use
  Company Number: US-SUN PHARMACEUTICAL INDUSTRIES LTD-2016US-127322

PATIENT
  Sex: Female

DRUGS (1)
  1. CETIRIZINE [Suspect]
     Active Substance: CETIRIZINE HYDROCHLORIDE
     Indication: HYPERSENSITIVITY
     Dosage: 1 DF, QD
     Route: 065
     Dates: start: 20161005, end: 201610

REACTIONS (9)
  - Heart rate increased [Not Recovered/Not Resolved]
  - Headache [Unknown]
  - Somnolence [Unknown]
  - Malaise [Unknown]
  - Disturbance in attention [Unknown]
  - Therapeutic response increased [Unknown]
  - Hypersomnia [Unknown]
  - Product substitution issue [Unknown]
  - Feeling abnormal [Unknown]

NARRATIVE: CASE EVENT DATE: 201610
